FAERS Safety Report 14269067 (Version 1)
Quarter: 2017Q4

REPORT INFORMATION
  Report Type: Spontaneous
  Country: SE (occurrence: SE)
  Receive Date: 20171211
  Receipt Date: 20171211
  Transmission Date: 20180321
  Serious: Yes (Life-Threatening, Other)
  Sender: FDA-Public Use
  Company Number: SE-OTSUKA-KJ201408587

PATIENT

DRUGS (6)
  1. LITHIONIT [Suspect]
     Active Substance: LITHIUM SULFATE
     Route: 048
     Dates: start: 2011
  2. ABILIFY [Suspect]
     Active Substance: ARIPIPRAZOLE
     Dosage: TABLET
     Dates: start: 2008
  3. OLANZAPINE. [Suspect]
     Active Substance: OLANZAPINE
     Route: 048
     Dates: start: 2008
  4. LITHIONIT 42 MG DEPOTTABLETT [Suspect]
     Active Substance: LITHIUM SULFATE
     Route: 048
     Dates: start: 2011
  5. OPC-14597IMD [Suspect]
     Active Substance: ARIPIPRAZOLE
     Route: 048
     Dates: start: 2008
  6. OLANZAPINE. [Suspect]
     Active Substance: OLANZAPINE
     Dosage: TABLET
     Route: 048
     Dates: start: 2008

REACTIONS (1)
  - Pulmonary embolism [Not Recovered/Not Resolved]

NARRATIVE: CASE EVENT DATE: 20140617
